FAERS Safety Report 7200585-6 (Version None)
Quarter: 2010Q4

REPORT INFORMATION
  Report Type: 
  Country: None (occurrence: None)
  Receive Date: 20101206
  Receipt Date: 20100330
  Transmission Date: 20110411
  Serious: Yes (Other)
  Sender: FDA-Public Use
  Company Number: 2010022356

PATIENT
  Sex: Female
  Weight: 73.4827 kg

DRUGS (20)
  1. VIVAGLOBIN [Suspect]
     Indication: IMMUNODEFICIENCY COMMON VARIABLE
     Dosage: SEE IMAGE
     Route: 058
     Dates: start: 20091101, end: 20091101
  2. VIVAGLOBIN [Suspect]
     Indication: IMMUNODEFICIENCY COMMON VARIABLE
     Dosage: SEE IMAGE
     Route: 058
     Dates: start: 20091201, end: 20091201
  3. VIVAGLOBIN [Suspect]
     Indication: IMMUNODEFICIENCY COMMON VARIABLE
     Dosage: SEE IMAGE
     Route: 058
     Dates: start: 20091221, end: 20091221
  4. VIVAGLOBIN [Suspect]
     Indication: IMMUNODEFICIENCY COMMON VARIABLE
     Dosage: SEE IMAGE
     Route: 058
     Dates: start: 20100410, end: 20100410
  5. VIVAGLOBIN [Suspect]
     Indication: IMMUNODEFICIENCY COMMON VARIABLE
     Dosage: SEE IMAGE
     Route: 058
     Dates: start: 20100328
  6. VIVAGLOBIN [Suspect]
     Indication: IMMUNODEFICIENCY COMMON VARIABLE
     Dosage: SEE IMAGE
     Route: 058
     Dates: start: 20100331
  7. VIVAGLOBIN [Suspect]
  8. VIVAGLOBIN [Suspect]
  9. VIVAGLOBIN [Suspect]
  10. VIVAGLOBIN [Suspect]
  11. VIVAGLOBIN [Suspect]
  12. VIVAGLOBIN [Suspect]
  13. VIVAGLOBIN [Suspect]
  14. VIVAGLOBIN [Suspect]
  15. APRI (MARVELON) [Suspect]
     Dates: start: 19890101, end: 20091227
  16. ACETAMINOPHEN [Concomitant]
  17. NSAIDS (NSAID'S) [Concomitant]
  18. AUGMENTIN (AUGMENTIN /00756801/) [Concomitant]
  19. ZYRTEC [Concomitant]
  20. ALPRAZOLAM [Concomitant]

REACTIONS (8)
  - COAGULATION FACTOR VIII LEVEL DECREASED [None]
  - DEEP VEIN THROMBOSIS [None]
  - MUSCLE SPASMS [None]
  - MYALGIA [None]
  - NEPHROLITHIASIS [None]
  - OROPHARYNGEAL PAIN [None]
  - PAIN IN EXTREMITY [None]
  - TREATMENT NONCOMPLIANCE [None]
